FAERS Safety Report 6486753-X (Version None)
Quarter: 2009Q4

REPORT INFORMATION
  Report Type: 
  Country: None (occurrence: None)
  Receive Date: 20091210
  Receipt Date: 20091204
  Transmission Date: 20100525
  Serious: Yes (Hospitalization, Other)
  Sender: FDA-Public Use
  Company Number: US-ELI_LILLY_AND_COMPANY-US200912001533

PATIENT
  Sex: Female

DRUGS (7)
  1. HUMULIN N [Suspect]
     Indication: DIABETES MELLITUS
     Dosage: 70 U, DAILY (1/D)
     Dates: start: 19910101
  2. HUMULIN N [Suspect]
     Dosage: 70 U, DAILY (1/D)
     Dates: start: 19910101
  3. RAMIPRIL [Concomitant]
     Dosage: 2.5 MG, UNK
  4. KLOR-CON [Concomitant]
     Dosage: 10 MEQ, UNK
  5. DIGOXIN [Concomitant]
     Dosage: 0.125 MG, UNK
  6. FUROSEMIDE [Concomitant]
     Dosage: 40 MG, UNK
  7. CARVEDILOL [Concomitant]
     Dosage: 3.125 D/F, UNK

REACTIONS (4)
  - CARDIAC FAILURE CONGESTIVE [None]
  - DYSPNOEA [None]
  - EYE HAEMORRHAGE [None]
  - VISUAL ACUITY REDUCED [None]
